FAERS Safety Report 8621735-0 (Version None)
Quarter: 2012Q3

REPORT INFORMATION
  Report Type: 
  Country: None (occurrence: None)
  Receive Date: 20120821
  Receipt Date: 20120821
  Transmission Date: 20120928
  Serious: Yes (Hospitalization)
  Sender: FDA-Public Use
  Company Number: None

PATIENT
  Sex: Male
  Weight: 42.6381 kg

DRUGS (6)
  1. DOXORUBICIN HYDROCHLORIDE [Suspect]
     Dosage: 152 MG
  2. CYCLOPHOSPHAMIDE [Suspect]
     Dosage: 2780 MG
  3. PREDNISONE [Suspect]
     Dosage: 646 MG
  4. RITUXIMAB (MUAB C2B8 ANTI CD20) [Suspect]
     Dosage: 810 MG
  5. ETOPOSIDE [Suspect]
     Dosage: 750 MG
  6. VINCRISTINE SULFATE [Suspect]
     Dosage: 3.6 MG

REACTIONS (2)
  - FEBRILE NEUTROPENIA [None]
  - MOUTH ULCERATION [None]
